FAERS Safety Report 8925364 (Version 1)
Quarter: 2012Q4

REPORT INFORMATION
  Report Type: 
  Country: CA (occurrence: CA)
  Receive Date: 20121126
  Receipt Date: 20121126
  Transmission Date: 20130627
  Serious: Yes (Death)
  Sender: FDA-Public Use
  Company Number: PHHY2012CA107559

PATIENT
  Age: 28 Year
  Sex: Male

DRUGS (1)
  1. CLOZARIL (CLOZAPINE) [Suspect]
     Dates: start: 20100409

REACTIONS (1)
  - Road traffic accident [Fatal]
